FAERS Safety Report 9600127 (Version 2)
Quarter: 2013Q4

REPORT INFORMATION
  Report Type: Report from Study
  Country: CO (occurrence: CO)
  Receive Date: 20131004
  Receipt Date: 20131004
  Transmission Date: 20140711
  Serious: Yes (Hospitalization)
  Sender: FDA-Public Use
  Company Number: CO-ABBVIE-13P-036-1117217-00

PATIENT
  Age: 26 Year
  Sex: Male
  Weight: 65 kg

DRUGS (2)
  1. HUMIRA [Suspect]
     Indication: PSORIASIS
     Route: 058
     Dates: start: 20120622, end: 201301
  2. HUMIRA [Suspect]
     Dates: start: 201306

REACTIONS (2)
  - Tuberculin test positive [Recovering/Resolving]
  - Pustular psoriasis [Recovered/Resolved]
